FAERS Safety Report 5622319-9 (Version None)
Quarter: 2008Q1

REPORT INFORMATION
  Report Type: 
  Country: None (occurrence: None)
  Receive Date: 20080114
  Receipt Date: 20070613
  Transmission Date: 20080703
  Serious: Yes (Death, Hospitalization)
  Sender: FDA-Public Use
  Company Number: A03200703850

PATIENT
  Age: 83 Year
  Sex: Male

DRUGS (3)
  1. PLAVIX [Suspect]
     Dosage: ORAL
     Route: 048
  2. COUMADIN [Suspect]
     Dosage: ORAL
     Route: 048
  3. SOLU-MEDROL [Suspect]
     Dates: start: 20060101

REACTIONS (6)
  - BLUE TOE SYNDROME [None]
  - HAEMORRHAGE [None]
  - HAEMORRHAGE INTRACRANIAL [None]
  - INCREASED TENDENCY TO BRUISE [None]
  - JAUNDICE [None]
  - THROMBOCYTOPENIA [None]
